FAERS Safety Report 8552862-4 (Version None)
Quarter: 2012Q3

REPORT INFORMATION
  Report Type: 
  Country: None (occurrence: None)
  Receive Date: 20120731
  Receipt Date: 20120727
  Transmission Date: 20120928
  Serious: Yes (Other)
  Sender: FDA-Public Use
  Company Number: PHHY2011CA89823

PATIENT
  Sex: Male

DRUGS (4)
  1. SANDOSTATIN [Suspect]
     Indication: CARCINOID SYNDROME
     Dosage: UNK UKN, UNK
     Route: 058
  2. NOVORAPID [Concomitant]
     Dosage: 4 TO 5 TIMES A DAY
     Route: 058
  3. SANDOSTATIN LAR [Suspect]
     Indication: CARCINOID SYNDROME
     Dosage: 30 MG, QMO
     Route: 030
     Dates: start: 20111012
  4. LANTUS [Concomitant]
     Dosage: UNK, QHS
     Route: 058

REACTIONS (8)
  - BLOOD GLUCOSE FLUCTUATION [None]
  - DIARRHOEA [None]
  - DYSPNOEA [None]
  - FLUSHING [None]
  - DISORIENTATION [None]
  - DISCOMFORT [None]
  - ABDOMINAL DISCOMFORT [None]
  - FEELING ABNORMAL [None]
